FAERS Safety Report 5340906-2 (Version None)
Quarter: 2007Q2

REPORT INFORMATION
  Report Type: 
  Country: None (occurrence: None)
  Receive Date: 20070531
  Receipt Date: 20070523
  Transmission Date: 20071010
  Serious: No
  Sender: FDA-Public Use
  Company Number: JP-MERCK-0705USA02710

PATIENT
  Age: 71 Year
  Sex: Male
  Weight: 84 kg

DRUGS (8)
  1. HYZAAR [Suspect]
     Indication: HYPERTENSION
     Route: 048
     Dates: start: 20070320, end: 20070502
  2. NORVASC [Concomitant]
     Indication: HYPERTENSION
     Route: 048
  3. DELAPRIL HYDROCHLORIDE [Concomitant]
     Indication: HYPERTENSION
     Route: 048
  4. LABETALOL HYDROCHLORIDE [Concomitant]
     Indication: HYPERTENSION
     Route: 048
  5. CRESTOR [Concomitant]
     Indication: HYPERLIPIDAEMIA
     Route: 048
  6. JUVELA N [Concomitant]
     Indication: HYPERLIPIDAEMIA
     Route: 048
  7. HYDRALAZINE HYDROCHLORIDE AND HYDROCHLOROTHIAZIDE AND RESERPINE [Concomitant]
     Indication: HYPERTENSION
     Route: 048
     Dates: end: 20070320
  8. HYDRALAZINE HYDROCHLORIDE AND HYDROCHLOROTHIAZIDE AND RESERPINE [Concomitant]
     Route: 048
     Dates: start: 20070507

REACTIONS (2)
  - ARTHRALGIA [None]
  - BACK PAIN [None]
